FAERS Safety Report 5077160-5 (Version None)
Quarter: 2006Q3

REPORT INFORMATION
  Report Type: 
  Country: None (occurrence: None)
  Receive Date: 20060810
  Receipt Date: 20051222
  Transmission Date: 20061208
  Serious: No
  Sender: FDA-Public Use
  Company Number: US-GLAXOSMITHKLINE-A0586836A

PATIENT
  Age: 37 Year
  Sex: Female

DRUGS (2)
  1. PAROXETINE HCL [Suspect]
     Indication: POST-TRAUMATIC STRESS DISORDER
     Dosage: 40MG PER DAY
     Route: 048
     Dates: start: 20040101, end: 20040601
  2. LEXAPRO [Suspect]
     Dosage: 2.5MG PER DAY

REACTIONS (2)
  - ARTHRALGIA [None]
  - JOINT SWELLING [None]
